FAERS Safety Report 14127092 (Version 1)
Quarter: 2017Q4

REPORT INFORMATION
  Report Type: Spontaneous
  Country: US (occurrence: US)
  Receive Date: 20171026
  Receipt Date: 20171026
  Transmission Date: 20180321
  Serious: No
  Sender: FDA-Public Use
  Company Number: US-ENDO PHARMACEUTICALS INC-2016-007467

PATIENT
  Sex: Female
  Weight: 70.76 kg

DRUGS (1)
  1. CARISOPRODOL TABLETS 350MG [Suspect]
     Active Substance: CARISOPRODOL
     Indication: SCAR
     Dosage: 1 DF, TID AS NEEDED
     Route: 048

REACTIONS (2)
  - Off label use [Unknown]
  - Product taste abnormal [Unknown]
